FAERS Safety Report 11318565 (Version 1)
Quarter: 2015Q3

REPORT INFORMATION
  Report Type: Report from Study
  Country: NL (occurrence: NL)
  Receive Date: 20150729
  Receipt Date: 20150729
  Transmission Date: 20151125
  Serious: Yes (Death, Other)
  Sender: FDA-Public Use
  Company Number: NL-AMGEN-NLDSL2015073479

PATIENT
  Age: 62 Year
  Sex: Male

DRUGS (7)
  1. CIMETIDINE [Concomitant]
     Active Substance: CIMETIDINE
     Dosage: 400 MG, QD
     Dates: start: 20150225
  2. NAPROXEN. [Concomitant]
     Active Substance: NAPROXEN
     Dosage: 500 MG, BID
     Dates: start: 20150225
  3. OLANZAPINE. [Concomitant]
     Active Substance: OLANZAPINE
     Dosage: 10 MG, QD
     Dates: start: 20150225
  4. CALCIUM CARBONATE W/COLECALCIFEROL [Concomitant]
     Active Substance: CALCIUM CARBONATE\CHOLECALCIFEROL
     Dosage: 1.25G/440IE, QD
     Dates: start: 20150225
  5. LORAZEPAM. [Concomitant]
     Active Substance: LORAZEPAM
     Dosage: 0.5 MG, QD
     Dates: start: 20150225
  6. GOSERELINE [Concomitant]
     Active Substance: GOSERELIN
     Dosage: 3.6 MG, QD
     Dates: start: 20150330
  7. XGEVA [Suspect]
     Active Substance: DENOSUMAB
     Indication: PRODUCT USED FOR UNKNOWN INDICATION
     Dosage: 120 MG, Q4WK
     Route: 058
     Dates: start: 20120717

REACTIONS (5)
  - Prostate cancer [Unknown]
  - Death [Fatal]
  - Metastases to bone [Unknown]
  - Weight decreased [Unknown]
  - Pain [Unknown]

NARRATIVE: CASE EVENT DATE: 20130314
